FAERS Safety Report 8134871-2 (Version None)
Quarter: 2012Q1

REPORT INFORMATION
  Report Type: 
  Country: None (occurrence: None)
  Receive Date: 20120214
  Receipt Date: 20120202
  Transmission Date: 20120608
  Serious: Yes (Other)
  Sender: FDA-Public Use
  Company Number: IT-UCBSA-049674

PATIENT
  Age: 77 Year
  Sex: Female

DRUGS (11)
  1. NORVARSC [Suspect]
     Indication: HYPERTENSION
     Dosage: TOTAL DAILY DOSE: 1DF:10 MG - 14 TABLETS
     Route: 048
     Dates: start: 20090101, end: 20111118
  2. CITALOPRAM HYDROBROMIDE [Concomitant]
     Indication: DEPRESSION
     Route: 048
  3. FERROUS SULFATE TAB [Concomitant]
     Dosage: FROM: PROLONGED RELEASE TABLETS.
     Route: 048
  4. IRBESARTAN + HYDROCHLOROTHIAZIDE [Suspect]
     Indication: HYPERTENSION
     Dosage: DAILY DOSE: 1 DF: 150 MG/12.5 MG - 28 TABLETS
     Route: 048
     Dates: start: 20090101, end: 20111118
  5. LASIX [Suspect]
     Indication: HYPERTENSION
     Dosage: 25 MG - 30 TABLETS: 1.5DF
     Route: 048
     Dates: start: 20090101, end: 20111118
  6. EN [Concomitant]
     Indication: ANXIETY
     Dosage: 1 MG - 20 TABLETS
     Route: 048
  7. CARVEDILOL [Suspect]
     Indication: HYPERTENSION
     Dosage: 25 MG - 30 TABLETS
     Route: 048
     Dates: start: 20090101, end: 20111118
  8. LORAZEPAM [Concomitant]
     Indication: ANXIETY
     Dosage: DAILY DOSE: 2.5 MG
     Route: 048
  9. CARDURA [Suspect]
     Indication: HYPERTENSION
     Dosage: 2 MG - 30 TABLETS
     Route: 048
     Dates: start: 20090101, end: 20111118
  10. REPAGLINIDE [Concomitant]
     Indication: TYPE 2 DIABETES MELLITUS
     Dosage: DAILY DOSE: 2 MG
     Route: 048
  11. ISOSORBIDE MONONITRATE [Suspect]
     Indication: HYPERTENSION
     Dosage: TOTAL DAILY DOSE: 20MG
     Route: 048
     Dates: start: 20090101, end: 20111118

REACTIONS (2)
  - HYPERTENSIVE CRISIS [None]
  - DRUG INEFFECTIVE [None]
